FAERS Safety Report 4815346-2 (Version None)
Quarter: 2005Q4

REPORT INFORMATION
  Report Type: 
  Country: None (occurrence: None)
  Receive Date: 20051027
  Receipt Date: 20051012
  Transmission Date: 20060501
  Serious: Yes (Other)
  Sender: FDA-Public Use
  Company Number: 20050008816

PATIENT
  Age: 40 Year
  Sex: Male

DRUGS (4)
  1. VIREAD [Suspect]
     Indication: HIV INFECTION
     Dates: end: 20040101
  2. TRUVADA [Suspect]
     Indication: HIV INFECTION
     Dates: start: 20040101, end: 20050101
  3. SUSTIVA [Concomitant]
  4. EPIVIR [Concomitant]

REACTIONS (6)
  - AUTOIMMUNE HEPATITIS [None]
  - GRANULOMA [None]
  - HEPATITIS SYPHILITIC [None]
  - IMMUNE RECONSTITUTION SYNDROME [None]
  - SYPHILIS [None]
  - TENOSYNOVITIS [None]
